FAERS Safety Report 5818905-3 (Version None)
Quarter: 2008Q3

REPORT INFORMATION
  Report Type: 
  Country: None (occurrence: None)
  Receive Date: 20080721
  Receipt Date: 20080721
  Transmission Date: 20090109
  Serious: Yes (Other)
  Sender: FDA-Public Use
  Company Number: None

PATIENT
  Age: 27 Year
  Sex: Female
  Weight: 70.3075 kg

DRUGS (1)
  1. EFFEXOR [Suspect]
     Indication: ANXIETY
     Dosage: 37.5  2 2TIMES A DAY PO
     Route: 048
     Dates: start: 20080301, end: 20080713

REACTIONS (5)
  - DECREASED ACTIVITY [None]
  - DRUG WITHDRAWAL SYNDROME [None]
  - MENTAL IMPAIRMENT [None]
  - NAUSEA [None]
  - VISUAL IMPAIRMENT [None]
